FAERS Safety Report 8069376-0 (Version None)
Quarter: 2012Q1

REPORT INFORMATION
  Report Type: 
  Country: None (occurrence: None)
  Receive Date: 20120118
  Receipt Date: 20120109
  Transmission Date: 20120608
  Serious: Yes (Hospitalization)
  Sender: FDA-Public Use
  Company Number: JPI-P-019207

PATIENT
  Age: 44 Year
  Sex: Female
  Weight: 72.5755 kg

DRUGS (2)
  1. XYREM [Suspect]
     Indication: NARCOLEPSY
     Dosage: ORAL; 6 GM (3 GM, 2 IN 1 D), ORAL
     Dates: start: 20110103, end: 20110101
  2. UNSPECIFIED ANTIBIOTIC [Suspect]
     Indication: PRODUCT USED FOR UNKNOWN INDICATION
     Dosage: COMPLETED COURSE PRIOR TO 06-JAN-2012

REACTIONS (3)
  - DEHYDRATION [None]
  - CLOSTRIDIUM DIFFICILE COLITIS [None]
  - URINE URIC ACID INCREASED [None]
